FAERS Safety Report 22810397 (Version 2)
Quarter: 2024Q1

REPORT INFORMATION
  Report Type: Spontaneous
  Country: US (occurrence: US)
  Receive Date: 20230810
  Receipt Date: 20240222
  Transmission Date: 20240410
  Serious: No
  Sender: FDA-Public Use
  Company Number: US-MYLANLABS-2022M1092569

PATIENT
  Sex: Male

DRUGS (7)
  1. SEMGLEE (INSULIN GLARGINE-YFGN) [Suspect]
     Active Substance: INSULIN GLARGINE-YFGN
     Indication: Type 2 diabetes mellitus
     Dosage: 32 INTERNATIONAL UNIT, QD
     Route: 058
  2. SEMGLEE (INSULIN GLARGINE-YFGN) [Suspect]
     Active Substance: INSULIN GLARGINE-YFGN
     Dosage: 35 INTERNATIONAL UNIT, QD, ONCE EVERY NIGHT
     Route: 058
  3. SEMGLEE (INSULIN GLARGINE-YFGN) [Suspect]
     Active Substance: INSULIN GLARGINE-YFGN
     Dosage: 35 INTERNATIONAL UNIT, QD
     Route: 058
  4. SEMGLEE (INSULIN GLARGINE-YFGN) [Suspect]
     Active Substance: INSULIN GLARGINE-YFGN
     Dosage: 35 INTERNATIONAL UNIT, QD, ONCE EVERY NIGHT
     Route: 058
  5. SEMGLEE (INSULIN GLARGINE-YFGN) [Suspect]
     Active Substance: INSULIN GLARGINE-YFGN
     Dosage: 35 INTERNATIONAL UNIT, QD
     Route: 058
  6. SEMGLEE (INSULIN GLARGINE-YFGN) [Suspect]
     Active Substance: INSULIN GLARGINE-YFGN
     Dosage: UNK
     Route: 058
  7. DEVICE [Suspect]
     Active Substance: DEVICE
     Indication: Type 2 diabetes mellitus

REACTIONS (4)
  - Wrong technique in device usage process [Unknown]
  - Product storage error [Unknown]
  - Device mechanical issue [Unknown]
  - Device issue [Unknown]
